FAERS Safety Report 6076147-3 (Version None)
Quarter: 2009Q1

REPORT INFORMATION
  Report Type: 
  Country: None (occurrence: None)
  Receive Date: 20090212
  Receipt Date: 20090204
  Transmission Date: 20090719
  Serious: Yes (Hospitalization)
  Sender: FDA-Public Use
  Company Number: DE-B.I. PHARMACEUTICALS,INC./RIDGEFIELD-2009-DE-01096DE

PATIENT
  Sex: Male
  Weight: 53 kg

DRUGS (7)
  1. SPIRIVA RESPIMAT [Suspect]
     Indication: CHRONIC OBSTRUCTIVE PULMONARY DISEASE
     Dosage: 2PUF
     Route: 055
     Dates: start: 20081107
  2. SPIRIVA RESPIMAT [Suspect]
     Indication: EMPHYSEMA
  3. BEROTEC [Concomitant]
     Indication: CHRONIC OBSTRUCTIVE PULMONARY DISEASE
     Dosage: AS REQUIRED
  4. BUDIAIR [Concomitant]
     Indication: CHRONIC OBSTRUCTIVE PULMONARY DISEASE
     Dosage: 2X2
  5. CONTIPHYLLIN 300 [Concomitant]
     Indication: CHRONIC OBSTRUCTIVE PULMONARY DISEASE
     Dosage: 2ANZ
  6. KEPPRA 1000 [Concomitant]
     Indication: EPILEPSY
     Route: 048
     Dates: start: 20081121
  7. NEUROTRAT S FORTE (VIT. B1/B6) [Concomitant]
     Dates: start: 20081121

REACTIONS (3)
  - CONVULSION [None]
  - INFECTIVE EXACERBATION OF CHRONIC OBSTRUCTIVE AIRWAYS DISEASE [None]
  - URINARY TRACT INFECTION [None]
